FAERS Safety Report 9874935 (Version 1)
Quarter: 2014Q1

REPORT INFORMATION
  Report Type: Other
  Country: US (occurrence: US)
  Receive Date: 20140206
  Receipt Date: 20140206
  Transmission Date: 20141002
  Serious: No
  Sender: FDA-Public Use
  Company Number: US-ACORDA-ACO_35617_2013

PATIENT
  Age: 51 Year
  Sex: Female

DRUGS (2)
  1. AMPYRA [Suspect]
     Indication: PRODUCT USED FOR UNKNOWN INDICATION
     Dosage: 10 MG, BID
  2. ROBITUSSIN [Suspect]
     Indication: NASOPHARYNGITIS
     Dosage: UNK

REACTIONS (5)
  - Abnormal dreams [Unknown]
  - Somnambulism [Unknown]
  - Pyrexia [Unknown]
  - Nasopharyngitis [Unknown]
  - Insomnia [Unknown]
